FAERS Safety Report 6509480-9 (Version None)
Quarter: 2009Q4

REPORT INFORMATION
  Report Type: 
  Country: None (occurrence: None)
  Receive Date: 20091217
  Receipt Date: 20091120
  Transmission Date: 20100525
  Serious: Yes (Life-Threatening, Hospitalization)
  Sender: FDA-Public Use
  Company Number: GB-EBEWE-0434MTX09

PATIENT
  Age: 66 Year
  Sex: Female
  Weight: 52 kg

DRUGS (12)
  1. METHOTREXATE [Suspect]
     Indication: RHEUMATOID ARTHRITIS
     Dosage: 12.5 MG 1/1 WEEK ORAL
     Route: 048
  2. TRIMETHOPRIM [Suspect]
     Indication: URINARY TRACT INFECTION
     Dosage: 200 MG, 2/1 DAY ORAL
     Route: 048
  3. AMITRIPTYLINE [Concomitant]
  4. DIGOXIN [Concomitant]
  5. FENTANYL-100 [Concomitant]
  6. FERROUS GLUCONATE [Concomitant]
  7. FOLIC ACID [Concomitant]
  8. PERINDOPRIL ERBUMINE [Concomitant]
  9. PROCHLORPERAZINE [Concomitant]
  10. RANITIDINE [Concomitant]
  11. SIMVASTATIN [Concomitant]
  12. SODIUM CHLORIDE [Concomitant]

REACTIONS (4)
  - HAEMATURIA [None]
  - MOUTH ULCERATION [None]
  - MUCOSAL INFLAMMATION [None]
  - NEUTROPENIC SEPSIS [None]
